FAERS Safety Report 5519372-X (Version None)
Quarter: 2007Q4

REPORT INFORMATION
  Report Type: 
  Country: None (occurrence: None)
  Receive Date: 20071116
  Receipt Date: 20071112
  Transmission Date: 20080405
  Serious: Yes (Hospitalization)
  Sender: FDA-Public Use
  Company Number: US-BAYER-200615185BWH

PATIENT
  Age: 68 Year
  Sex: Male
  Weight: 91 kg

DRUGS (24)
  1. SORAFENIB [Suspect]
     Indication: HEPATIC NEOPLASM MALIGNANT
     Dosage: TOTAL DAILY DOSE: 400 MG  UNIT DOSE: 200 MG
     Route: 048
     Dates: start: 20060804
  2. SORAFENIB [Suspect]
     Dosage: TOTAL DAILY DOSE: 400 MG  UNIT DOSE: 200 MG
     Route: 048
     Dates: start: 20060714, end: 20060724
  3. SORAFENIB [Suspect]
     Dosage: TOTAL DAILY DOSE: 400 MG  UNIT DOSE: 200 MG
     Route: 048
     Dates: start: 20060820, end: 20060925
  4. DOXORUBICIN HCL [Suspect]
     Indication: HEPATIC NEOPLASM MALIGNANT
     Route: 042
     Dates: start: 20060920, end: 20060920
  5. DOXORUBICIN HCL [Suspect]
     Route: 042
     Dates: start: 20060804
  6. DOXORUBICIN HCL [Suspect]
     Route: 042
     Dates: start: 20060714, end: 20060714
  7. COMPAZINE [Concomitant]
     Indication: NAUSEA
     Dates: start: 20060712, end: 20060804
  8. METOPROLOL TARTRATE [Concomitant]
     Indication: HYPERTENSION
     Dosage: TOTAL DAILY DOSE: 100 MG
     Dates: start: 20060804
  9. METOPROLOL TARTRATE [Concomitant]
     Dates: start: 20060712
  10. AUGMENTIN '250' [Concomitant]
     Dates: start: 20060712, end: 20060804
  11. COLACE [Concomitant]
     Indication: CONSTIPATION PROPHYLAXIS
     Dates: start: 20060712
  12. SENOKOT [Concomitant]
     Indication: CONSTIPATION
     Dates: start: 20060712
  13. MORPHINE SULFATE [Concomitant]
     Indication: PAIN
     Dates: start: 20060712, end: 20060804
  14. DURAGESIC-100 [Concomitant]
     Indication: PAIN
     Dates: start: 20060712, end: 20060804
  15. LIDOCAINE [Concomitant]
     Indication: PAIN
     Dates: start: 20060712
  16. FENTANYL [Concomitant]
     Indication: PAIN
     Dates: start: 20060804
  17. METOCLOPRAMIDE [Concomitant]
     Indication: GASTROOESOPHAGEAL REFLUX DISEASE
     Dates: start: 20060804
  18. LORAZEPAM [Concomitant]
     Dates: start: 20060804
  19. NORVASC [Concomitant]
     Indication: HYPERTENSION
     Dates: start: 20060804
  20. NEXIUM [Concomitant]
     Indication: GASTROOESOPHAGEAL REFLUX DISEASE
     Dates: start: 20060804
  21. MEGACE [Concomitant]
     Indication: DECREASED APPETITE
     Dates: start: 20060804
  22. DECADRON [Concomitant]
     Indication: CHEMOTHERAPY
     Dates: start: 20060804
  23. EMEND [Concomitant]
     Indication: CHEMOTHERAPY
     Dates: start: 20060804
  24. PALONOSETRON [Concomitant]

REACTIONS (7)
  - ABDOMINAL PAIN [None]
  - HEPATIC PAIN [None]
  - HICCUPS [None]
  - MUCOSAL INFLAMMATION [None]
  - NAUSEA [None]
  - NEUTROPHIL COUNT DECREASED [None]
  - VOMITING [None]
